FAERS Safety Report 10752089 (Version 2)
Quarter: 2015Q1

REPORT INFORMATION
  Report Type: Report from Study
  Country: GE (occurrence: GE)
  Receive Date: 20150130
  Receipt Date: 20150324
  Transmission Date: 20150721
  Serious: Yes (Death, Other)
  Sender: FDA-Public Use
  Company Number: GE-JNJFOC-20150115564

PATIENT
  Age: 52 Year
  Sex: Male
  Weight: 53 kg

DRUGS (23)
  1. LINEZOLID. [Suspect]
     Active Substance: LINEZOLID
     Indication: TUBERCULOSIS
     Route: 065
     Dates: start: 20141223, end: 20150106
  2. ALBUMIN [Concomitant]
     Active Substance: ALBUMIN (HUMAN)
     Indication: HYPOALBUMINAEMIA
     Dosage: 40/5 MG
     Route: 042
     Dates: start: 20141209, end: 201502
  3. QUETIAPINE [Concomitant]
     Active Substance: QUETIAPINE
     Indication: INSOMNIA
     Dosage: HALF TABLET DAILY
     Route: 048
     Dates: start: 20150121, end: 20150227
  4. TMC207 [Suspect]
     Active Substance: BEDAQUILINE
     Indication: TUBERCULOSIS
     Route: 048
     Dates: start: 20141010, end: 20141209
  5. IMIPENEM [Suspect]
     Active Substance: IMIPENEM
     Indication: TUBERCULOSIS
     Route: 065
     Dates: start: 20141223, end: 20150106
  6. IMIPENEM [Suspect]
     Active Substance: IMIPENEM
     Indication: TUBERCULOSIS
     Route: 065
     Dates: start: 20141010, end: 20141209
  7. AMOXICILLIN/CLAVULANATE [Suspect]
     Active Substance: AMOXICILLIN\CLAVULANATE POTASSIUM
     Indication: TUBERCULOSIS
     Route: 065
     Dates: start: 20141010, end: 20141209
  8. AMOXICILLIN/CLAVULANATE [Suspect]
     Active Substance: AMOXICILLIN\CLAVULANATE POTASSIUM
     Indication: TUBERCULOSIS
     Route: 065
     Dates: start: 20141223, end: 20150106
  9. CLOFAZIMINE [Suspect]
     Active Substance: CLOFAZIMINE
     Indication: TUBERCULOSIS
     Route: 065
     Dates: start: 20141010, end: 20141209
  10. FUROSEMIDE. [Concomitant]
     Active Substance: FUROSEMIDE
     Indication: FLUID RETENTION
     Route: 048
     Dates: start: 20141209, end: 20150128
  11. OMEPRAZOLE. [Concomitant]
     Active Substance: OMEPRAZOLE
     Indication: GASTROINTESTINAL DISORDER THERAPY
     Dosage: 40/5 MG
     Route: 048
     Dates: start: 20150210, end: 20150227
  12. TMC207 [Suspect]
     Active Substance: BEDAQUILINE
     Indication: TUBERCULOSIS
     Route: 048
     Dates: start: 20150204, end: 20150217
  13. LINEZOLID. [Suspect]
     Active Substance: LINEZOLID
     Indication: TUBERCULOSIS
     Route: 065
     Dates: start: 20141010, end: 20141202
  14. FUROSEMIDE/AMILORIDE HCL [Concomitant]
     Indication: FLUID RETENTION
     Dosage: 40/5 MG
     Route: 048
     Dates: start: 20150106, end: 20150227
  15. TMC207 [Suspect]
     Active Substance: BEDAQUILINE
     Indication: TUBERCULOSIS
     Route: 048
     Dates: start: 20141223, end: 20150106
  16. MILDRONATE [Concomitant]
     Route: 048
     Dates: start: 201409, end: 201502
  17. LEVOTHYROXINE [Concomitant]
     Active Substance: LEVOTHYROXINE
     Indication: HYPOTHYROIDISM
     Route: 048
     Dates: start: 20141213, end: 20150227
  18. DEXAMETHASON [Concomitant]
     Active Substance: DEXAMETHASONE
     Indication: HYPOTENSION
     Dosage: 40/5 MG
     Route: 042
     Dates: start: 20150210, end: 20150227
  19. CAPREOMYCIN [Suspect]
     Active Substance: CAPREOMYCIN
     Indication: TUBERCULOSIS
     Route: 065
     Dates: start: 20141010, end: 20141209
  20. ZOPICLON [Concomitant]
     Active Substance: ZOPICLONE
     Indication: INSOMNIA
     Route: 048
     Dates: start: 201409, end: 20141212
  21. FUROSEMIDE. [Concomitant]
     Active Substance: FUROSEMIDE
     Indication: FLUID RETENTION
     Route: 042
     Dates: start: 20150129, end: 20150227
  22. CLOFAZIMINE [Suspect]
     Active Substance: CLOFAZIMINE
     Indication: TUBERCULOSIS
     Route: 065
     Dates: start: 20141223, end: 20150106
  23. METOPROLOL [Concomitant]
     Active Substance: METOPROLOL
     Indication: TACHYCARDIA
     Route: 048
     Dates: start: 201409, end: 20150105

REACTIONS (4)
  - Hypoalbuminaemia [Recovering/Resolving]
  - Hypoproteinaemia [Recovering/Resolving]
  - Nephrotic syndrome [Fatal]
  - Generalised oedema [Recovering/Resolving]

NARRATIVE: CASE EVENT DATE: 20141128
